FAERS Safety Report 23865430 (Version 1)
Quarter: 2024Q2

REPORT INFORMATION
  Report Type: Spontaneous
  Country: US (occurrence: US)
  Receive Date: 20240517
  Receipt Date: 20240517
  Transmission Date: 20240716
  Serious: No
  Sender: FDA-Public Use
  Company Number: US-TARSUS PHARMACEUTICALS-TSP-US-2024-000097

PATIENT
  Sex: Female

DRUGS (13)
  1. XDEMVY [Suspect]
     Active Substance: LOTILANER
     Indication: Arthropod infestation
     Dosage: 1 DROP, BID
     Route: 047
     Dates: start: 20240320
  2. SYNTHROID [Concomitant]
     Active Substance: LEVOTHYROXINE SODIUM
     Indication: Thyroid disorder
     Dosage: UNK
     Route: 065
  3. ASPIRIN [Concomitant]
     Active Substance: ASPIRIN
     Indication: Product used for unknown indication
     Dosage: UNK MILLIGRAM
     Route: 065
  4. JARDIANCE [Concomitant]
     Active Substance: EMPAGLIFLOZIN
     Indication: Diabetes mellitus
     Dosage: UNK
     Route: 065
  5. FOLIC ACID [Concomitant]
     Active Substance: FOLIC ACID
     Indication: Cerebrovascular accident prophylaxis
     Dosage: UNK
     Route: 065
  6. GABAPENTIN [Concomitant]
     Active Substance: GABAPENTIN
     Indication: Neuralgia
     Dosage: UNK
     Route: 065
  7. VASCEPA [Concomitant]
     Active Substance: ICOSAPENT ETHYL
     Indication: Blood cholesterol increased
     Dosage: UNK
     Route: 065
  8. VITAMIN D3 [Concomitant]
     Active Substance: CHOLECALCIFEROL
     Indication: Vitamin D deficiency
     Dosage: UNK
     Route: 065
  9. TRESIBA [Concomitant]
     Active Substance: INSULIN DEGLUDEC
     Indication: Diabetes mellitus
     Dosage: UNK
     Route: 065
  10. FIASP [Concomitant]
     Active Substance: INSULIN ASPART
     Indication: Diabetes mellitus
     Dosage: UNK
     Route: 065
  11. OZEMPIC [Concomitant]
     Active Substance: SEMAGLUTIDE
     Indication: Diabetes mellitus
     Dosage: UNK
     Route: 065
  12. QUNOL COQ10 [Concomitant]
     Indication: Prophylaxis
     Dosage: UNK
     Route: 065
  13. EZETIMIBE\SIMVASTATIN [Concomitant]
     Active Substance: EZETIMIBE\SIMVASTATIN
     Indication: Blood cholesterol increased
     Dosage: UNK
     Route: 065

REACTIONS (1)
  - Wrong technique in product usage process [Unknown]
